FAERS Safety Report 9782382 (Version 1)
Quarter: 2013Q4

REPORT INFORMATION
  Report Type: Spontaneous
  Country: BR (occurrence: BR)
  Receive Date: 20131226
  Receipt Date: 20131226
  Transmission Date: 20140711
  Serious: Yes (Other)
  Sender: FDA-Public Use
  Company Number: PHHY2013BR150136

PATIENT
  Age: 66 Year
  Sex: Female

DRUGS (3)
  1. ONBREZ [Suspect]
     Dosage: 150 UG, QD
  2. AZITHROMYCIN [Suspect]
     Dosage: UNK
  3. XALATAN [Suspect]
     Dosage: UNK UKN, UNK

REACTIONS (7)
  - Chronic obstructive pulmonary disease [Unknown]
  - Hypertension [Unknown]
  - Bronchiectasis [Unknown]
  - Glaucoma [Unknown]
  - Intraocular pressure increased [Unknown]
  - Cataract [Unknown]
  - Diabetes mellitus [Unknown]
